FAERS Safety Report 26184368 (Version 1)
Quarter: 2025Q4

REPORT INFORMATION
  Report Type: Spontaneous
  Country: US (occurrence: US)
  Receive Date: 20251222
  Receipt Date: 20251222
  Transmission Date: 20260118
  Serious: No
  Sender: BIOCON
  Company Number: US-MIMS-BCONMC-18519

PATIENT

DRUGS (3)
  1. YESINTEK [Suspect]
     Active Substance: USTEKINUMAB-KFCE
     Indication: Crohn^s disease
     Dosage: 90 MG/ML, QMONTH UNDER THE SKIN
     Route: 058
     Dates: start: 20250320
  2. CHOLECALCIFEROL [Concomitant]
     Active Substance: CHOLECALCIFEROL
     Indication: Product used for unknown indication
     Dosage: UNK, 1 TABLET BY MOUTH
     Route: 048
  3. CYANOCOBALAMIN [Concomitant]
     Active Substance: CYANOCOBALAMIN
     Indication: Product used for unknown indication
     Dosage: 1 ML, QMONTH INTO THE MUSCLE
     Route: 030
     Dates: start: 20240605, end: 20250925

REACTIONS (7)
  - Therapy interrupted [Unknown]
  - Blood glucose decreased [Unknown]
  - Haemoglobin decreased [Unknown]
  - Protein total decreased [Unknown]
  - Product dispensing issue [Unknown]
  - Device leakage [Unknown]
  - Device breakage [Unknown]
